FAERS Safety Report 25768984 (Version 1)
Quarter: 2025Q3

REPORT INFORMATION
  Report Type: Spontaneous
  Country: MX (occurrence: MX)
  Receive Date: 20250905
  Receipt Date: 20250905
  Transmission Date: 20251020
  Serious: Yes (Other)
  Sender: BIOMARIN
  Company Number: MX-BIOMARINAP-MX-2025-168544

PATIENT
  Age: 3 Year
  Sex: Female
  Weight: 11 kg

DRUGS (1)
  1. NAGLAZYME [Suspect]
     Active Substance: GALSULFASE
     Indication: Mucopolysaccharidosis VI
     Dosage: 10 MILLIGRAM, QW
     Dates: start: 20240507

REACTIONS (2)
  - Renal tubular acidosis [Unknown]
  - Milk allergy [Unknown]

NARRATIVE: CASE EVENT DATE: 20240901
